FAERS Safety Report 12897938 (Version 3)
Quarter: 2017Q2

REPORT INFORMATION
  Report Type: Spontaneous
  Country: US (occurrence: US)
  Receive Date: 20161031
  Receipt Date: 20170501
  Transmission Date: 20170830
  Serious: No
  Sender: FDA-Public Use
  Company Number: US-AKRIMAX-TIR-2016-0985

PATIENT
  Age: 53 Year
  Sex: Female
  Weight: 84.44 kg

DRUGS (4)
  1. TIROSINT [Suspect]
     Active Substance: LEVOTHYROXINE SODIUM
     Dosage: ONCE DAILY
     Route: 048
     Dates: start: 20161126, end: 201701
  2. TIROSINT [Suspect]
     Active Substance: LEVOTHYROXINE SODIUM
     Indication: HYPOTHYROIDISM
     Dosage: ONCE DAILY
     Route: 048
     Dates: start: 201605, end: 201606
  3. TIROSINT [Suspect]
     Active Substance: LEVOTHYROXINE SODIUM
     Dosage: ONCE DAILY
     Route: 048
     Dates: start: 201701, end: 20170120
  4. TIROSINT [Suspect]
     Active Substance: LEVOTHYROXINE SODIUM
     Dosage: ONCE DAILY
     Route: 048
     Dates: start: 20160701, end: 201611

REACTIONS (30)
  - Dry eye [Unknown]
  - Dysphagia [Unknown]
  - Product size issue [Unknown]
  - Product colour issue [Unknown]
  - Inappropriate schedule of drug administration [Unknown]
  - Sneezing [Unknown]
  - Constipation [Unknown]
  - Dyschezia [Unknown]
  - Hyperhidrosis [Unknown]
  - Trichorrhexis [Unknown]
  - Hot flush [Unknown]
  - Product physical issue [Unknown]
  - Discomfort [Unknown]
  - Headache [Unknown]
  - Insomnia [Recovered/Resolved]
  - Alopecia [Unknown]
  - Product quality issue [Unknown]
  - Dry skin [Unknown]
  - Abdominal pain upper [Unknown]
  - Nausea [Unknown]
  - Rash [Unknown]
  - Arthralgia [Recovered/Resolved]
  - Product shape issue [Unknown]
  - Dizziness [Unknown]
  - Faeces hard [Unknown]
  - Rectal haemorrhage [Unknown]
  - Myalgia [Recovered/Resolved]
  - Joint swelling [Unknown]
  - Malaise [Recovered/Resolved]
  - Pharyngeal oedema [Recovering/Resolving]

NARRATIVE: CASE EVENT DATE: 201607
